FAERS Safety Report 9471827 (Version 1)
Quarter: 2013Q3

REPORT INFORMATION
  Report Type: Spontaneous
  Country: US (occurrence: None)
  Receive Date: 20130819
  Receipt Date: 20130819
  Transmission Date: 20140515
  Serious: Yes (Hospitalization)
  Sender: FDA-Public Use
  Company Number: 1839409

PATIENT
  Age: 40 Year
  Sex: Female

DRUGS (2)
  1. PHENYTOIN [Suspect]
     Indication: CONVULSION
  2. PREDNISONE [Concomitant]

REACTIONS (2)
  - Anaemia [None]
  - Drug reaction with eosinophilia and systemic symptoms [None]
